FAERS Safety Report 5958089-4 (Version None)
Quarter: 2008Q4

REPORT INFORMATION
  Report Type: 
  Country: None (occurrence: None)
  Receive Date: 20081119
  Receipt Date: 20081113
  Transmission Date: 20090506
  Serious: Yes (Other)
  Sender: FDA-Public Use
  Company Number: B0546095A

PATIENT
  Age: 85 Year
  Sex: Female

DRUGS (1)
  1. PAROXETINE HCL [Suspect]
     Indication: DEPRESSION
     Route: 048

REACTIONS (3)
  - ACTIVATION SYNDROME [None]
  - AKATHISIA [None]
  - SELF INJURIOUS BEHAVIOUR [None]
